FAERS Safety Report 15270194 (Version 1)
Quarter: 2018Q3

REPORT INFORMATION
  Report Type: Spontaneous
  Country: US (occurrence: US)
  Receive Date: 20180726
  Receipt Date: 20180726
  Transmission Date: 20181010
  Serious: Yes (Death)
  Sender: FDA-Public Use
  Company Number: None

PATIENT
  Age: 65 Year
  Sex: Female

DRUGS (9)
  1. DEXAMETH PHO [Concomitant]
  2. FARYDAK [Suspect]
     Active Substance: PANOBINOSTAT
     Indication: PLASMA CELL MYELOMA
     Dosage: ?          OTHER FREQUENCY:EVERY MWF EVERY OT;?
     Route: 048
     Dates: start: 20180615, end: 201807
  3. POMALYST [Concomitant]
     Active Substance: POMALIDOMIDE
  4. VELCADE [Concomitant]
     Active Substance: BORTEZOMIB
  5. GABAPENTIN. [Concomitant]
     Active Substance: GABAPENTIN
  6. SINGULAIR [Concomitant]
     Active Substance: MONTELUKAST SODIUM
  7. ACYCLOVIR. [Concomitant]
     Active Substance: ACYCLOVIR
  8. FENTANYL. [Concomitant]
     Active Substance: FENTANYL
  9. DARZALEX [Concomitant]
     Active Substance: DARATUMUMAB

REACTIONS (1)
  - Death [None]

NARRATIVE: CASE EVENT DATE: 201807
